FAERS Safety Report 24972791 (Version 1)
Quarter: 2025Q1

REPORT INFORMATION
  Report Type: Report from Study
  Country: US (occurrence: US)
  Receive Date: 20250215
  Receipt Date: 20250215
  Transmission Date: 20250409
  Serious: Yes (Other)
  Sender: ABBVIE
  Company Number: US-ABBVIE-6114656

PATIENT
  Age: 70 Year
  Sex: Female
  Weight: 93 kg

DRUGS (16)
  1. HUMIRA [Suspect]
     Active Substance: ADALIMUMAB
     Indication: Rheumatoid arthritis
     Route: 058
     Dates: start: 20220921, end: 202501
  2. FOLIC ACID [Concomitant]
     Active Substance: FOLIC ACID
     Indication: Vitamin supplementation
     Dosage: STRENGTH: 800 MICROGRAM
     Route: 065
  3. Msm with glucosamine [Concomitant]
     Indication: Supplementation therapy
  4. FISH OIL [Concomitant]
     Active Substance: FISH OIL
     Indication: Nutritional supplementation
     Route: 065
  5. ACETAMINOPHEN\HYDROCODONE [Concomitant]
     Active Substance: ACETAMINOPHEN\HYDROCODONE
     Indication: Pain
     Route: 065
  6. MUPIROCIN [Concomitant]
     Active Substance: MUPIROCIN
     Indication: Rash
     Route: 061
  7. VITAMINS [Concomitant]
     Active Substance: VITAMINS
     Indication: Vitamin supplementation
  8. VITAMIN C [Concomitant]
     Active Substance: ASCORBIC ACID
     Indication: Vitamin supplementation
  9. ACYCLOVIR [Concomitant]
     Active Substance: ACYCLOVIR
     Indication: Stomatitis
     Route: 065
  10. GABAPENTIN [Concomitant]
     Active Substance: GABAPENTIN
     Indication: Neuropathy peripheral
  11. OLMESARTAN [Concomitant]
     Active Substance: OLMESARTAN
     Indication: Hypertension
  12. CALCIUM\CHOLECALCIFEROL [Concomitant]
     Active Substance: CALCIUM\CHOLECALCIFEROL
     Indication: Product used for unknown indication
  13. CARISOPRODOL [Concomitant]
     Active Substance: CARISOPRODOL
     Indication: Muscle spasms
     Dosage: STRENGTH: 35 MILLIGRAM
     Route: 065
  14. MELOXICAM [Concomitant]
     Active Substance: MELOXICAM
     Indication: Arthritis
     Route: 065
  15. METHOTREXATE [Concomitant]
     Active Substance: METHOTREXATE
     Indication: Rheumatoid arthritis
     Route: 065
  16. LEVOTHYROXINE [Concomitant]
     Active Substance: LEVOTHYROXINE
     Indication: Thyroid disorder
     Route: 065

REACTIONS (5)
  - Retention cyst [Recovered/Resolved]
  - Nasopharyngitis [Recovered/Resolved]
  - Fluid retention [Recovered/Resolved]
  - Scoliosis [Not Recovered/Not Resolved]
  - Hypoacusis [Recovering/Resolving]

NARRATIVE: CASE EVENT DATE: 20230101
